FAERS Safety Report 6056072-4 (Version None)
Quarter: 2009Q1

REPORT INFORMATION
  Report Type: 
  Country: None (occurrence: None)
  Receive Date: 20090126
  Receipt Date: 20090114
  Transmission Date: 20090719
  Serious: Yes (Hospitalization)
  Sender: FDA-Public Use
  Company Number: CIP09000094

PATIENT
  Age: 56 Year
  Sex: Female

DRUGS (4)
  1. RISEDRONATE SODIUM [Suspect]
     Indication: RHEUMATOID ARTHRITIS
     Dosage: 35 MG ONCE WEEKLY, ORAL
     Route: 048
     Dates: start: 20000101, end: 20081201
  2. ACTIVELLE /00686201/ (ESTRADIOL, NORETHISTERONE ACETATE) [Concomitant]
  3. CALCICHEW D3 (CALCIUM CARBONATE, COLECALCIFEROL) [Concomitant]
  4. CORTISONE (CORTISONE) [Concomitant]

REACTIONS (7)
  - BONE FISSURE [None]
  - FEMUR FRACTURE [None]
  - JOINT INJURY [None]
  - MOVEMENT DISORDER [None]
  - OSTEOSCLEROSIS [None]
  - PAIN IN EXTREMITY [None]
  - PATHOLOGICAL FRACTURE [None]
